FAERS Safety Report 21499028 (Version 3)
Quarter: 2022Q4

REPORT INFORMATION
  Report Type: Spontaneous
  Country: FR (occurrence: FR)
  Receive Date: 20221024
  Receipt Date: 20221102
  Transmission Date: 20230112
  Serious: Yes (Other)
  Sender: FDA-Public Use
  Company Number: None

PATIENT
  Age: 71 Year
  Sex: Male

DRUGS (2)
  1. OPDIVO [Suspect]
     Active Substance: NIVOLUMAB
     Indication: Renal cancer
     Dosage: Q15 DAYS (EVERY 15 DAYS)
     Route: 042
     Dates: start: 20220409
  2. CABOMETYX [Suspect]
     Active Substance: CABOZANTINIB S-MALATE
     Indication: Renal cancer
     Route: 048
     Dates: start: 20220409

REACTIONS (5)
  - Asthenia [Not Recovered/Not Resolved]
  - Vertigo [Recovered/Resolved]
  - Decreased appetite [Not Recovered/Not Resolved]
  - General physical health deterioration [Recovered/Resolved]
  - Intentional product use issue [Unknown]

NARRATIVE: CASE EVENT DATE: 20220521
